FAERS Safety Report 6048978-7 (Version None)
Quarter: 2009Q1

REPORT INFORMATION
  Report Type: 
  Country: None (occurrence: None)
  Receive Date: 20090123
  Receipt Date: 20090116
  Transmission Date: 20090719
  Serious: Yes (Hospitalization)
  Sender: FDA-Public Use
  Company Number: A0764903A

PATIENT
  Age: 73 Year
  Sex: Female
  Weight: 70.5 kg

DRUGS (1)
  1. AVANDAMET [Suspect]
     Dosage: 2MG TWICE PER DAY
     Route: 048
     Dates: start: 20060101, end: 20070401

REACTIONS (2)
  - HEART INJURY [None]
  - MYOCARDIAL INFARCTION [None]
